FAERS Safety Report 17096393 (Version 4)
Quarter: 2021Q1

REPORT INFORMATION
  Report Type: Spontaneous
  Country: FR (occurrence: FR)
  Receive Date: 20191202
  Receipt Date: 20210112
  Transmission Date: 20210419
  Serious: Yes (Death, Other)
  Sender: FDA-Public Use
  Company Number: FR-SUN PHARMACEUTICAL INDUSTRIES LTD-2019RR-229306

PATIENT
  Age: 73 Year
  Sex: Male
  Weight: 74 kg

DRUGS (21)
  1. VENCLYXTO [Suspect]
     Active Substance: VENETOCLAX
     Dosage: 50 MILLIGRAM, UNK
     Route: 048
     Dates: start: 20180919, end: 20180925
  2. ALLOPURINOL. [Concomitant]
     Active Substance: ALLOPURINOL
     Indication: HYPERURICAEMIA
  3. VENCLYXTO [Suspect]
     Active Substance: VENETOCLAX
     Dosage: ()
     Route: 048
     Dates: start: 20181010, end: 20181019
  4. FOLINIC ACID [Concomitant]
     Active Substance: LEUCOVORIN
     Dosage: ()
     Route: 065
     Dates: start: 20180923, end: 20181011
  5. CEFTAZIDIME. [Concomitant]
     Active Substance: CEFTAZIDIME
     Indication: INFECTION
     Dosage: ()
     Route: 065
     Dates: start: 20180921, end: 20180922
  6. AMLODIPINE [Concomitant]
     Active Substance: AMLODIPINE BESYLATE
     Indication: HYPERTENSION
     Dosage: ()
     Route: 065
     Dates: start: 20180908, end: 20181011
  7. VENCLYXTO [Suspect]
     Active Substance: VENETOCLAX
     Dosage: ()
     Route: 048
     Dates: start: 20181003, end: 20181009
  8. VALACICLOVIR [Concomitant]
     Active Substance: VALACYCLOVIR HYDROCHLORIDE
     Indication: ANTIVIRAL TREATMENT
     Dosage: ()
     Route: 065
     Dates: start: 20180908
  9. CIPROFLOXACIN. [Suspect]
     Active Substance: CIPROFLOXACIN
     Indication: INFECTION
     Dosage: ()
     Route: 065
     Dates: start: 20180921, end: 20180921
  10. VENCLYXTO [Suspect]
     Active Substance: VENETOCLAX
     Dosage: 100 MILLIGRAM, UNK
     Route: 048
     Dates: start: 20180926, end: 20181002
  11. BACTRIM [Suspect]
     Active Substance: SULFAMETHOXAZOLE\TRIMETHOPRIM
     Indication: INFECTION
     Dosage: ()
     Route: 065
     Dates: start: 20180923
  12. FOLINIC ACID [Concomitant]
     Active Substance: LEUCOVORIN
     Indication: HAEMATOTOXICITY
  13. IMBRUVICA [Suspect]
     Active Substance: IBRUTINIB
     Indication: CHRONIC LYMPHOCYTIC LEUKAEMIA
     Dosage: UNK
     Route: 048
     Dates: start: 20170806, end: 20181009
  14. BUDESONIDE. [Concomitant]
     Active Substance: BUDESONIDE
     Indication: ASTHMA
     Dosage: ()
     Route: 065
     Dates: start: 20180907, end: 20180927
  15. GANFORT [Concomitant]
     Active Substance: BIMATOPROST\TIMOLOL
     Indication: GLAUCOMA
     Dosage: ()
     Route: 065
     Dates: start: 20180908, end: 20181011
  16. ALLOPURINOL. [Concomitant]
     Active Substance: ALLOPURINOL
     Indication: HYPERURICAEMIA
     Dosage: ()
     Route: 065
     Dates: start: 20180907, end: 20181009
  17. VENCLYXTO [Suspect]
     Active Substance: VENETOCLAX
     Indication: CHRONIC LYMPHOCYTIC LEUKAEMIA
     Dosage: ()
     Route: 048
  18. IBRUTINIB [Suspect]
     Active Substance: IBRUTINIB
     Indication: CHRONIC LYMPHOCYTIC LEUKAEMIA
     Dosage: ()
     Route: 065
     Dates: start: 20170806, end: 20181009
  19. VENCLYXTO [Suspect]
     Active Substance: VENETOCLAX
     Dosage: 20 MILLIGRAM, UNK
     Route: 048
     Dates: start: 20180911, end: 20180918
  20. IMBRUVICA [Suspect]
     Active Substance: IBRUTINIB
     Indication: CHRONIC LYMPHOCYTIC LEUKAEMIA
  21. ENOXAPARIN SODIUM. [Concomitant]
     Active Substance: ENOXAPARIN SODIUM
     Indication: ANTICOAGULANT THERAPY
     Dosage: ()
     Route: 065
     Dates: start: 20180922, end: 20181011

REACTIONS (15)
  - Off label use [Unknown]
  - Hypocalcaemia [Not Recovered/Not Resolved]
  - Death [Fatal]
  - Hypogammaglobulinaemia [Unknown]
  - Hyperkalaemia [Not Recovered/Not Resolved]
  - Oedema peripheral [Not Recovered/Not Resolved]
  - Respiratory distress [Recovered/Resolved with Sequelae]
  - Haematotoxicity [Unknown]
  - Pseudomonas infection [Recovered/Resolved]
  - Hyperkalaemia [Recovered/Resolved]
  - Diarrhoea [Recovered/Resolved]
  - Respiratory distress [Recovered/Resolved]
  - Hypertensive crisis [Recovered/Resolved]
  - Off label use [Recovered/Resolved]
  - Decubitus ulcer [Recovered/Resolved]

NARRATIVE: CASE EVENT DATE: 201809
